FAERS Safety Report 6303836-5 (Version None)
Quarter: 2009Q3

REPORT INFORMATION
  Report Type: 
  Country: None (occurrence: None)
  Receive Date: 20090805
  Receipt Date: 20090729
  Transmission Date: 20100115
  Serious: Yes (Other)
  Sender: FDA-Public Use
  Company Number: CHPA2009US15903

PATIENT
  Age: 8 Year
  Sex: Male
  Weight: 43.1 kg

DRUGS (2)
  1. TRIAMINIC SRT [Suspect]
     Indication: COUGH
     Dosage: ORAL
     Route: 048
  2. TRIAMINIC SRT [Suspect]
     Indication: NASOPHARYNGITIS
     Dosage: ORAL
     Route: 048

REACTIONS (3)
  - BRAIN SCAN ABNORMAL [None]
  - CONVULSION [None]
  - DRUG THERAPY CHANGED [None]
